FAERS Safety Report 5210089-8 (Version None)
Quarter: 2006Q4

REPORT INFORMATION
  Report Type: 
  Country: None (occurrence: None)
  Receive Date: 20061127
  Receipt Date: 20060428
  Transmission Date: 20070319
  Serious: Yes (Other)
  Sender: FDA-Public Use
  Company Number: 2006BH009969

PATIENT
  Sex: Female
  Weight: 36.2878 kg

DRUGS (4)
  1. DIANEAL [Suspect]
     Indication: RENAL FAILURE CHRONIC
     Dosage: 5 L;IP
     Route: 033
  2. IPN [Concomitant]
  3. EPOGEN [Concomitant]
  4. ANTI-HYPERTENSIVE MEDICATIONS [Concomitant]

REACTIONS (1)
  - PERITONITIS [None]
